FAERS Safety Report 17768357 (Version 1)
Quarter: 2020Q2

REPORT INFORMATION
  Report Type: Report from Study
  Country: None (occurrence: AR)
  Receive Date: 20200511
  Receipt Date: 20200511
  Transmission Date: 20200714
  Serious: Yes (Other)
  Sender: FDA-Public Use
  Company Number: AR-ABBVIE-20K-007-3397818-00

PATIENT
  Sex: Female

DRUGS (1)
  1. HUMIRA [Suspect]
     Active Substance: ADALIMUMAB
     Indication: EXPOSURE VIA BODY FLUID
     Route: 050

REACTIONS (3)
  - Maternal exposure during pregnancy [Unknown]
  - Paternal exposure during pregnancy [Unknown]
  - Foetal death [Unknown]
